FAERS Safety Report 21264251 (Version 1)
Quarter: 2022Q3

REPORT INFORMATION
  Report Type: Spontaneous
  Country: PL (occurrence: PL)
  Receive Date: 20220829
  Receipt Date: 20220829
  Transmission Date: 20221027
  Serious: Yes (Life-Threatening, Hospitalization, Other)
  Sender: FDA-Public Use
  Company Number: PL-MLMSERVICE-20220706-3662129-1

PATIENT
  Age: 36 Year
  Sex: Female

DRUGS (6)
  1. CYCLOPHOSPHAMIDE [Suspect]
     Active Substance: CYCLOPHOSPHAMIDE
     Indication: Glomerulonephritis chronic
     Dosage: UNK
     Route: 065
     Dates: start: 1994
  2. TACROLIMUS [Suspect]
     Active Substance: TACROLIMUS
     Indication: Immunosuppressant drug therapy
     Dosage: QD
     Route: 065
     Dates: start: 2005, end: 2021
  3. TACROLIMUS [Suspect]
     Active Substance: TACROLIMUS
     Dosage: BID
     Route: 065
     Dates: start: 2021
  4. AZATHIOPRINE [Suspect]
     Active Substance: AZATHIOPRINE
     Indication: Immunosuppressant drug therapy
     Dosage: THE IMMUNOSUPPRESSION SCHEDULE WAS MODIFIED BETWEEN 4 AND 8 YEARS POST-TRANSPLANT BY CONVERTING MYCO
     Route: 065
  5. PREDNISOLONE [Suspect]
     Active Substance: PREDNISOLONE
     Indication: Immunosuppressant drug therapy
     Dosage: UNK
     Route: 065
     Dates: start: 2005
  6. MYCOPHENOLATE MOFETIL [Suspect]
     Active Substance: MYCOPHENOLATE MOFETIL
     Indication: Immunosuppressant drug therapy
     Dosage: 250 MG, BID (THE IMMUNOSUPPRESSION SCHEDULE WAS MODIFIED BETWEEN 4 AND 8 YEARS POST-TRANSPLANT BY CO
     Route: 065
     Dates: start: 2005, end: 2021

REACTIONS (1)
  - Adenocarcinoma of colon [Unknown]

NARRATIVE: CASE EVENT DATE: 20201001
